FAERS Safety Report 4425807-6 (Version None)
Quarter: 2004Q3

REPORT INFORMATION
  Report Type: 
  Country: None (occurrence: None)
  Receive Date: 20040810
  Receipt Date: 20040727
  Transmission Date: 20050211
  Serious: Yes (Hospitalization)
  Sender: FDA-Public Use
  Company Number: 2004226125AU

PATIENT
  Age: 65 Year
  Sex: Female

DRUGS (14)
  1. METHOBLASTIN              (METHOTREXATE) [Suspect]
     Indication: RHEUMATOID ARTHRITIS
     Dosage: 20 MG, WEEKLY, UNK
     Route: 048
  2. SULFASALAZINE [Suspect]
     Indication: RHEUMATOID ARTHRITIS
     Dosage: 1.5 G, BID, UNK
     Route: 048
  3. LEFLUNOMIDE [Suspect]
     Indication: RHEUMATOID ARTHRITIS
     Dosage: 20 MG, QD, UNK
  4. HYDROXYCHLOROQUINE SULFATE [Suspect]
     Indication: RHEUMATOID ARTHRITIS
     Dosage: 200 MG, QD, UNK
  5. OMEPRAZOLE [Concomitant]
  6. PIPERAZINE [Concomitant]
  7. MELOXICAM (MELOXICAM) [Concomitant]
  8. OXAZEPAM [Concomitant]
  9. SALMETEROL (SALMETEROL) [Concomitant]
  10. SALBUTAMOL (SALBUTAMOL) [Concomitant]
  11. DOXEPIN (DOXEPIN) [Concomitant]
  12. CYPROHEPTADINE HCL [Concomitant]
  13. AMILORIDE HCL W/HYDROCHLOROTHIAZIDE [Concomitant]
  14. TEMAZEPAM [Concomitant]

REACTIONS (7)
  - BONE MARROW DEPRESSION [None]
  - CELLULITIS [None]
  - DIARRHOEA [None]
  - GASTROINTESTINAL DISORDER [None]
  - MOUTH ULCERATION [None]
  - PANCYTOPENIA [None]
  - THERAPEUTIC AGENT TOXICITY [None]
